FAERS Safety Report 10569416 (Version 2)
Quarter: 2015Q1

REPORT INFORMATION
  Report Type: Spontaneous
  Country: JP (occurrence: JP)
  Receive Date: 20141106
  Receipt Date: 20150123
  Transmission Date: 20150720
  Serious: Yes (Other)
  Sender: FDA-Public Use
  Company Number: JP-BAXTER-2014BAX065454

PATIENT
  Age: 0 Day
  Sex: Male

DRUGS (3)
  1. KAYTWO [Concomitant]
     Active Substance: MENATETRENONE
     Indication: COAGULATION TEST ABNORMAL
     Route: 065
  2. ADVATE [Suspect]
     Active Substance: ANTIHEMOPHILIC FACTOR, HUMAN RECOMBINANT
     Indication: COAGULATION TEST ABNORMAL
     Route: 065
  3. SEVOFLURANE. [Concomitant]
     Active Substance: SEVOFLURANE
     Indication: GENERAL ANAESTHESIA
     Route: 055

REACTIONS (2)
  - Blood potassium increased [Unknown]
  - Electrolyte imbalance [Unknown]
